FAERS Safety Report 8139163-3 (Version None)
Quarter: 2012Q1

REPORT INFORMATION
  Report Type: 
  Country: None (occurrence: None)
  Receive Date: 20120215
  Receipt Date: 20120210
  Transmission Date: 20120608
  Serious: Yes (Other)
  Sender: FDA-Public Use
  Company Number: US-BAYER-2012-013714

PATIENT
  Sex: Female

DRUGS (4)
  1. BETAPACE [Suspect]
     Indication: HYPERTENSION
     Dosage: 80 MG, BID
     Dates: start: 20100101, end: 20111201
  2. BETAPACE [Suspect]
     Dosage: UNK
  3. BETAPACE [Suspect]
     Dosage: 80 MG, BID
     Dates: start: 20111201
  4. BETAPACE [Suspect]
     Dosage: 120 MG, TID
     Dates: end: 20120109

REACTIONS (5)
  - HEADACHE [None]
  - BLOOD PRESSURE INCREASED [None]
  - BLOOD PRESSURE DIASTOLIC DECREASED [None]
  - BLOOD PRESSURE SYSTOLIC INCREASED [None]
  - CHEST PAIN [None]
